FAERS Safety Report 8134354-X (Version None)
Quarter: 2012Q1

REPORT INFORMATION
  Report Type: 
  Country: None (occurrence: None)
  Receive Date: 20120209
  Receipt Date: 20120124
  Transmission Date: 20120608
  Serious: Yes (Hospitalization)
  Sender: FDA-Public Use
  Company Number: FK201200250

PATIENT
  Sex: Male

DRUGS (3)
  1. FOLIC ACID [Concomitant]
  2. METHOTREXATE [Suspect]
     Indication: RHEUMATOID ARTHRITIS
     Dosage: 5 MG, 1 IN 1 WK
  3. METHYLPRENISOLONE (METHYLPREDNISOLONE) [Concomitant]

REACTIONS (5)
  - RHEUMATOID NODULE [None]
  - SUBCUTANEOUS NODULE [None]
  - MUSCULOSKELETAL STIFFNESS [None]
  - GASTROINTESTINAL DISORDER [None]
  - ARTHRALGIA [None]
